FAERS Safety Report 7044551-2 (Version None)
Quarter: 2010Q4

REPORT INFORMATION
  Report Type: 
  Country: None (occurrence: None)
  Receive Date: 20101013
  Receipt Date: 20101013
  Transmission Date: 20110411
  Serious: Yes (Other)
  Sender: FDA-Public Use
  Company Number: None

PATIENT
  Age: 62 Year
  Sex: Female
  Weight: 65.4 kg

DRUGS (3)
  1. GEMCITABINE [Suspect]
     Indication: OVARIAN CANCER
     Dosage: 1000MG/M2 Q2WEEKS IV
     Route: 042
     Dates: start: 20100317, end: 20101006
  2. CARBOPLATIN [Suspect]
     Indication: OVARIAN CANCER
     Dosage: AUC 3 Q2WEEKS IV
     Route: 042
     Dates: start: 20100317, end: 20101006
  3. BEVACIZUMAB [Concomitant]

REACTIONS (1)
  - NEUTROPHIL COUNT ABNORMAL [None]
